FAERS Safety Report 9137452 (Version 4)
Quarter: 2014Q4

REPORT INFORMATION
  Report Type: Spontaneous
  Country: IT (occurrence: IT)
  Receive Date: 20130304
  Receipt Date: 20141218
  Transmission Date: 20150529
  Serious: Yes (Hospitalization, Disabling)
  Sender: FDA-Public Use
  Company Number: IT-BAYER-2013-026454

PATIENT
  Age: 28 Year
  Sex: Female

DRUGS (1)
  1. YASMIN [Suspect]
     Active Substance: DROSPIRENONE\ETHINYL ESTRADIOL
     Indication: POLYCYSTIC OVARIES
     Dosage: UNK
     Route: 048
     Dates: start: 20110101, end: 20110417

REACTIONS (14)
  - Hyperhidrosis [Unknown]
  - Coronary artery dissection [Unknown]
  - Pain in extremity [Unknown]
  - Chest pain [Unknown]
  - Abdominal pain upper [Unknown]
  - Infertility female [Unknown]
  - Myocardial ischaemia [Unknown]
  - Vomiting [Unknown]
  - Asthenia [Unknown]
  - Acute myocardial infarction [Unknown]
  - Protein S deficiency [None]
  - Product use issue [None]
  - Coronary artery occlusion [Unknown]
  - Polycystic ovaries [Unknown]

NARRATIVE: CASE EVENT DATE: 20110417
